FAERS Safety Report 25706453 (Version 1)
Quarter: 2025Q3

REPORT INFORMATION
  Report Type: Spontaneous
  Country: CA (occurrence: CA)
  Receive Date: 20250820
  Receipt Date: 20250820
  Transmission Date: 20251021
  Serious: Yes (Disabling, Other)
  Sender: BAYER HEALTHCARE PHARMACEUTICALS INC.
  Company Number: CA-BAYER-2025A107576

PATIENT

DRUGS (1)
  1. CIPROFLOXACIN [Suspect]
     Active Substance: CIPROFLOXACIN

REACTIONS (7)
  - Complex regional pain syndrome [Unknown]
  - Nausea [Unknown]
  - Headache [Unknown]
  - Diverticulitis [Unknown]
  - Fine motor skill dysfunction [Unknown]
  - Dysgraphia [Unknown]
  - Nervous system disorder [Unknown]
